FAERS Safety Report 8390385-6 (Version None)
Quarter: 2012Q2

REPORT INFORMATION
  Report Type: 
  Country: None (occurrence: None)
  Receive Date: 20120529
  Receipt Date: 20120515
  Transmission Date: 20120825
  Serious: Yes (Other)
  Sender: FDA-Public Use
  Company Number: US-JNJFOC-20120514158

PATIENT
  Sex: Male
  Weight: 61.7 kg

DRUGS (5)
  1. REMICADE [Suspect]
     Route: 042
     Dates: start: 20090603
  2. MULTI-VITAMINS [Concomitant]
  3. FERROUS SULFATE TAB [Concomitant]
  4. VITAMIN D [Concomitant]
  5. REMICADE [Suspect]
     Indication: CROHN'S DISEASE
     Route: 042
     Dates: start: 20120514

REACTIONS (1)
  - INFUSION RELATED REACTION [None]
